FAERS Safety Report 25934385 (Version 2)
Quarter: 2025Q4

REPORT INFORMATION
  Report Type: Spontaneous
  Country: GB (occurrence: GB)
  Receive Date: 20251017
  Receipt Date: 20251124
  Transmission Date: 20260118
  Serious: Yes (Hospitalization)
  Sender: MYLAN
  Company Number: GB-MYLANLABS-2025M1087154

PATIENT
  Age: 30 Year
  Sex: Female

DRUGS (2)
  1. CLOZARIL [Suspect]
     Active Substance: CLOZAPINE
     Indication: Schizophrenia
     Dosage: 250 MILLIGRAM, PM (OD NOCTE)
     Dates: start: 20200406, end: 20251006
  2. CLOZARIL [Suspect]
     Active Substance: CLOZAPINE
     Dosage: UNK (TITRATION COMMENCED DATE 11-NOV-2025)

REACTIONS (11)
  - Hospitalisation [Unknown]
  - Thinking abnormal [Unknown]
  - Aggression [Unknown]
  - Delusion [Unknown]
  - Psychotic disorder [Unknown]
  - Sedation [Unknown]
  - Hallucination [Unknown]
  - Agitation [Unknown]
  - Malaise [Unknown]
  - Weight increased [Unknown]
  - Therapy cessation [Unknown]
